FAERS Safety Report 5071326-6 (Version None)
Quarter: 2006Q3

REPORT INFORMATION
  Report Type: 
  Country: None (occurrence: None)
  Receive Date: 20060804
  Receipt Date: 20051109
  Transmission Date: 20061208
  Serious: No
  Sender: FDA-Public Use
  Company Number: US-AMGEN-US157350

PATIENT
  Sex: Male
  Weight: 86.7 kg

DRUGS (2)
  1. ARANESP [Suspect]
     Indication: MYELODYSPLASTIC SYNDROME
     Route: 058
     Dates: start: 20050718, end: 20051109
  2. IRON [Concomitant]
     Route: 042

REACTIONS (7)
  - ABSCESS [None]
  - DERMATITIS [None]
  - HYPERSENSITIVITY [None]
  - INSOMNIA [None]
  - OEDEMA [None]
  - PRURITUS [None]
  - RASH ERYTHEMATOUS [None]
